FAERS Safety Report 22825584 (Version 3)
Quarter: 2024Q2

REPORT INFORMATION
  Report Type: Spontaneous
  Country: US (occurrence: US)
  Receive Date: 20230816
  Receipt Date: 20240531
  Transmission Date: 20240716
  Serious: No
  Sender: FDA-Public Use
  Company Number: US-GSK-US2023107365

PATIENT
  Age: 60 Year
  Sex: Female

DRUGS (3)
  1. NUCALA [Suspect]
     Active Substance: MEPOLIZUMAB
     Indication: Asthma
     Dosage: 100 MG
     Route: 058
     Dates: start: 2022
  2. ALBUTEROL [Concomitant]
     Active Substance: ALBUTEROL
     Indication: Product used for unknown indication
     Dosage: UNK
  3. IPRATROPIUM BROMIDE [Concomitant]
     Active Substance: IPRATROPIUM BROMIDE\IPRATROPIUM BROMIDE ANHYDROUS
     Indication: Product used for unknown indication
     Dosage: UNK

REACTIONS (9)
  - Dyspnoea [Unknown]
  - Cyanosis [Unknown]
  - Throat tightness [Unknown]
  - Symptom recurrence [Unknown]
  - Cough [Unknown]
  - Drug ineffective [Unknown]
  - Product dose omission issue [Unknown]
  - Product dispensing error [Unknown]
  - Product storage error [Unknown]

NARRATIVE: CASE EVENT DATE: 20230531
